FAERS Safety Report 9871498 (Version 1)
Quarter: 2014Q1

REPORT INFORMATION
  Report Type: Spontaneous
  Country: US (occurrence: None)
  Receive Date: 20140204
  Receipt Date: 20140204
  Transmission Date: 20141002
  Serious: Yes (Life-Threatening, Disabling)
  Sender: FDA-Public Use
  Company Number: None

PATIENT
  Age: 22 Year
  Sex: Male
  Weight: 77.11 kg

DRUGS (1)
  1. SERTRALINE [Suspect]
     Indication: MENTAL DISORDER
     Route: 048
     Dates: start: 19971001, end: 2008

REACTIONS (3)
  - Convulsion [None]
  - Unevaluable event [None]
  - Head discomfort [None]
